FAERS Safety Report 5854113-8 (Version None)
Quarter: 2008Q3

REPORT INFORMATION
  Report Type: 
  Country: None (occurrence: None)
  Receive Date: 20080822
  Receipt Date: 20080813
  Transmission Date: 20090109
  Serious: Yes (Hospitalization)
  Sender: FDA-Public Use
  Company Number: GB-ROCHE-578680

PATIENT
  Age: 43 Year
  Sex: Male

DRUGS (10)
  1. SAQUINAVIR [Suspect]
     Route: 048
     Dates: start: 19980401
  2. HYDROCORTISONE [Suspect]
     Indication: BURKITT'S LYMPHOMA
     Route: 037
     Dates: start: 19980404, end: 19980909
  3. CYCLOPHOSPHAMIDE [Suspect]
     Indication: BURKITT'S LYMPHOMA
     Route: 041
     Dates: start: 19980101, end: 19980901
  4. CYTARABINE [Suspect]
     Indication: BURKITT'S LYMPHOMA
     Route: 037
     Dates: start: 19980401, end: 19980901
  5. DOXORUBICIN HCL [Suspect]
     Indication: BURKITT'S LYMPHOMA
     Route: 042
     Dates: start: 19980101, end: 19980901
  6. METHOTREXATE SODIUM [Suspect]
     Indication: BURKITT'S LYMPHOMA
     Route: 051
     Dates: start: 19980404, end: 19980909
  7. PREDNISOLONE [Suspect]
     Indication: BURKITT'S LYMPHOMA
     Route: 048
     Dates: start: 19980401, end: 19980901
  8. RITONAVIR [Suspect]
     Route: 048
     Dates: start: 19980401
  9. VINCRISTINE SULFATE [Suspect]
     Indication: BURKITT'S LYMPHOMA
     Dosage: DRUG REPORTED AS: 'VINCRISTINE SULFATE'
     Route: 042
     Dates: start: 19980401, end: 19980901
  10. CO-TRIMOXAZOLE [Concomitant]
     Route: 048
     Dates: start: 19961001

REACTIONS (4)
  - MULTIPLE FRACTURES [None]
  - OSTEONECROSIS [None]
  - OSTEOPOROSIS [None]
  - SPINAL COMPRESSION FRACTURE [None]
